FAERS Safety Report 8539453 (Version 2)
Quarter: 2013Q2

REPORT INFORMATION
  Report Type: Spontaneous
  Country: US (occurrence: US)
  Receive Date: 20120501
  Receipt Date: 20130520
  Transmission Date: 20140414
  Serious: No
  Sender: FDA-Public Use
  Company Number: US-SANOFI-AVENTIS-2012SA023538

PATIENT
  Age: 61 Year
  Sex: Male

DRUGS (2)
  1. SOLOSTAR [Suspect]
  2. APIDRA [Suspect]
     Route: 058

REACTIONS (3)
  - Laceration [Unknown]
  - Product quality issue [Unknown]
  - Injection site pain [Unknown]
